FAERS Safety Report 15209521 (Version 2)
Quarter: 2018Q3

REPORT INFORMATION
  Report Type: Spontaneous
  Country: CN (occurrence: CN)
  Receive Date: 20180727
  Receipt Date: 20180801
  Transmission Date: 20181010
  Serious: Yes (Death, Life-Threatening, Other)
  Sender: FDA-Public Use
  Company Number: CN-PFIZER INC-2018301484

PATIENT
  Age: 56 Year
  Sex: Female

DRUGS (2)
  1. METHOTREXATE. [Suspect]
     Active Substance: METHOTREXATE
     Indication: DIFFUSE LARGE B-CELL LYMPHOMA
     Dosage: UNK, CYCLIC (8 G/M2 METHOTREXATE (DAY 1), REPEATED EVERY 14 DAYS 8 G/M2)
     Dates: start: 2015
  2. RITUXIMAB. [Suspect]
     Active Substance: RITUXIMAB
     Indication: DIFFUSE LARGE B-CELL LYMPHOMA
     Dosage: 375 MG/M2 RITUXIMAB (DAY 3), REPEATED EVERY 14 DAYS
     Dates: start: 2015

REACTIONS (3)
  - Bone marrow failure [Fatal]
  - Lung infection [Fatal]
  - Haemorrhage [Fatal]

NARRATIVE: CASE EVENT DATE: 2015
